FAERS Safety Report 16779354 (Version 1)
Quarter: 2019Q3

REPORT INFORMATION
  Report Type: Spontaneous
  Country: US (occurrence: US)
  Receive Date: 20190906
  Receipt Date: 20190906
  Transmission Date: 20191005
  Serious: No
  Sender: FDA-Public Use
  Company Number: US-PFIZER INC-2019366476

PATIENT
  Age: 47 Year
  Sex: Female

DRUGS (2)
  1. BEYAZ [Concomitant]
     Active Substance: DROSPIRENONE\ETHINYL ESTRADIOL\LEVOMEFOLATE CALCIUM
     Indication: CONTRACEPTION
     Dosage: 20 MCG OF ETHINYLESTRADIOL 3 MG DROSPIRENONE COMBINATION, 1X/DAY
     Route: 048
  2. RELPAX [Suspect]
     Active Substance: ELETRIPTAN HYDROBROMIDE
     Indication: MIGRAINE
     Dosage: 40 MG, 1X/DAY
     Route: 048

REACTIONS (2)
  - Gastrointestinal disorder [Unknown]
  - Recalled product administered [Unknown]
